FAERS Safety Report 4613867-9 (Version None)
Quarter: 2005Q1

REPORT INFORMATION
  Report Type: 
  Country: None (occurrence: None)
  Receive Date: 20050321
  Receipt Date: 20050311
  Transmission Date: 20050727
  Serious: Yes (Hospitalization)
  Sender: FDA-Public Use
  Company Number: US-BRISTOL-MYERS SQUIBB COMPANY-12895082

PATIENT
  Age: 54 Year
  Sex: Female
  Weight: 53 kg

DRUGS (5)
  1. CARBOPLATIN [Suspect]
     Indication: NON-SMALL CELL LUNG CANCER
     Dosage: START DATE:  22-SEP-2003, DAY 1 OF EACH CYCLE.
     Route: 042
     Dates: start: 20040105, end: 20040105
  2. PACLITAXEL [Suspect]
     Indication: NON-SMALL CELL LUNG CANCER
     Dosage: START DATE:  22-SEP-2003, DAY 1 OF EACH CYCLE.
     Route: 042
     Dates: start: 20040105, end: 20040105
  3. HYDROCODONE BITARTRATE [Concomitant]
  4. METOCLOPRAMIDE [Concomitant]
  5. EPOGEN [Concomitant]
     Route: 058

REACTIONS (1)
  - PNEUMONIA [None]
